FAERS Safety Report 6239399-2 (Version None)
Quarter: 2009Q2

REPORT INFORMATION
  Report Type: 
  Country: None (occurrence: None)
  Receive Date: 20090618
  Receipt Date: 20090618
  Transmission Date: 20091009
  Serious: Yes (Other)
  Sender: FDA-Public Use
  Company Number: None

PATIENT
  Age: 51 Year
  Sex: Female
  Weight: 85.7298 kg

DRUGS (2)
  1. ZICAM NASAL SWABS + GEL [Suspect]
     Indication: NASOPHARYNGITIS
     Dosage: 1 SWAB OR SQUIRT AS NEEDED FOR COLD NASAL
     Route: 045
     Dates: start: 20040101, end: 20090101
  2. ZICAM MOUTH SPRAY [Suspect]
     Indication: NASOPHARYNGITIS
     Dosage: 2-3 SPRAYS AS NEEDED FOR COLD PO
     Route: 048
     Dates: start: 20080101, end: 20090101

REACTIONS (2)
  - HYPOGEUSIA [None]
  - HYPOSMIA [None]
